FAERS Safety Report 24231845 (Version 1)
Quarter: 2024Q3

REPORT INFORMATION
  Report Type: Spontaneous
  Country: BG (occurrence: BG)
  Receive Date: 20240821
  Receipt Date: 20240821
  Transmission Date: 20241016
  Serious: Yes (Other)
  Sender: IMMUNOCORE
  Company Number: BG-Medison-000504

PATIENT

DRUGS (2)
  1. KIMMTRAK [Suspect]
     Active Substance: TEBENTAFUSP-TEBN
     Indication: Metastatic ocular melanoma
     Dosage: 68 MICROGRAM WEEKLY
     Dates: start: 202307
  2. KIMMTRAK [Suspect]
     Active Substance: TEBENTAFUSP-TEBN
     Dosage: 66.6 MICROGRAM
     Dates: start: 20240709

REACTIONS (2)
  - Metastasis [Unknown]
  - Underdose [Unknown]

NARRATIVE: CASE EVENT DATE: 20240709
